FAERS Safety Report 20265107 (Version 5)
Quarter: 2023Q4

REPORT INFORMATION
  Report Type: Spontaneous
  Country: US (occurrence: US)
  Receive Date: 20211231
  Receipt Date: 20231020
  Transmission Date: 20240109
  Serious: No
  Sender: FDA-Public Use
  Company Number: US-PFIZER INC-202101360381

PATIENT
  Age: 65 Year
  Sex: Female

DRUGS (2)
  1. IBRANCE [Suspect]
     Active Substance: PALBOCICLIB
     Dosage: 125 MG
  2. LETROZOLE [Suspect]
     Active Substance: LETROZOLE

REACTIONS (4)
  - Dry skin [Unknown]
  - Skin disorder [Unknown]
  - Dysstasia [Recovered/Resolved]
  - Neoplasm progression [Unknown]
